FAERS Safety Report 7038431-6 (Version None)
Quarter: 2010Q4

REPORT INFORMATION
  Report Type: 
  Country: None (occurrence: None)
  Receive Date: 20101011
  Receipt Date: 20100121
  Transmission Date: 20110411
  Serious: No
  Sender: FDA-Public Use
  Company Number: US-PFIZER INC-2004031710

PATIENT
  Sex: Female
  Weight: 65.7 kg

DRUGS (9)
  1. NEURONTIN [Suspect]
     Indication: COMPLEX REGIONAL PAIN SYNDROME
     Dosage: 600 MG, 3X/DAY
     Route: 048
     Dates: start: 20040401
  2. LYRICA [Suspect]
     Dosage: 75 MG, 2X/DAY
  3. SERTRALINE HYDROCHLORIDE [Concomitant]
     Route: 048
  4. FENTANYL [Concomitant]
     Route: 062
  5. ZOLPIDEM TARTRATE [Concomitant]
  6. OMEGA-3 MARINE TRIGLYCERIDES [Concomitant]
  7. NAPROXEN SODIUM / SUMATRIPTAN SUCCINATE [Concomitant]
  8. CLARINEX [Concomitant]
  9. SYMBICORT [Concomitant]

REACTIONS (3)
  - JOINT SWELLING [None]
  - OEDEMA PERIPHERAL [None]
  - PARAESTHESIA [None]
